FAERS Safety Report 16342753 (Version 1)
Quarter: 2019Q2

REPORT INFORMATION
  Report Type: Spontaneous
  Country: US (occurrence: US)
  Receive Date: 20190416
  Receipt Date: 20190416
  Transmission Date: 20190711
  Serious: No
  Sender: FDA-Public Use
  Company Number: None

PATIENT
  Age: 8 Year
  Sex: Female

DRUGS (1)
  1. RAPAMUNE [Suspect]
     Active Substance: SIROLIMUS
     Dates: start: 201811

REACTIONS (2)
  - Product substitution issue [None]
  - Inappropriate schedule of product administration [None]

NARRATIVE: CASE EVENT DATE: 20190416
